FAERS Safety Report 9687291 (Version 1)
Quarter: 2013Q4

REPORT INFORMATION
  Report Type: Spontaneous
  Country: AU (occurrence: AU)
  Receive Date: 20131114
  Receipt Date: 20131114
  Transmission Date: 20140711
  Serious: Yes (Other)
  Sender: FDA-Public Use
  Company Number: AU-ROCHE-1302069

PATIENT
  Age: 53 Year
  Sex: Female
  Weight: 49 kg

DRUGS (5)
  1. DIAZEPAM [Suspect]
     Indication: PRODUCT USED FOR UNKNOWN INDICATION
     Route: 048
  2. FLUCLOXACILLIN SODIUM [Suspect]
     Indication: PRODUCT USED FOR UNKNOWN INDICATION
     Route: 065
     Dates: start: 20130125, end: 20130129
  3. CHLORAMPHENICOL [Concomitant]
     Dosage: 6 DOSE UNSPEC
     Route: 065
     Dates: start: 20130125
  4. NICOTINE TRANSDERMAL PATCH [Concomitant]
     Route: 062
     Dates: start: 20130123
  5. PANTOPRAZOLE [Concomitant]
     Route: 048
     Dates: start: 20130125

REACTIONS (1)
  - Liver function test abnormal [Unknown]
